FAERS Safety Report 8565501-3 (Version None)
Quarter: 2012Q3

REPORT INFORMATION
  Report Type: 
  Country: None (occurrence: None)
  Receive Date: 20120803
  Receipt Date: 20120606
  Transmission Date: 20120928
  Serious: No
  Sender: FDA-Public Use
  Company Number: US-BRISTOL-MYERS SQUIBB COMPANY-16667149

PATIENT
  Age: 57 Year
  Sex: Female
  Weight: 45 kg

DRUGS (4)
  1. ESTRACE [Suspect]
     Dosage: TABS
     Dates: start: 20110101, end: 20110101
  2. DIVIGEL [Concomitant]
     Dosage: FORMULATION-PATCH
     Route: 062
  3. THYROID TAB [Concomitant]
     Indication: THYROID DISORDER
  4. SPIRIVA [Concomitant]
     Indication: CHRONIC OBSTRUCTIVE PULMONARY DISEASE
     Dosage: FORMULATION-INHALATION POWDER
     Route: 055

REACTIONS (2)
  - TABLET PHYSICAL ISSUE [None]
  - ABDOMINAL DISCOMFORT [None]
